FAERS Safety Report 5242654-6 (Version None)
Quarter: 2007Q1

REPORT INFORMATION
  Report Type: 
  Country: None (occurrence: None)
  Receive Date: 20070214
  Receipt Date: 20070201
  Transmission Date: 20070707
  Serious: Yes (Death)
  Sender: FDA-Public Use
  Company Number: 2007-00654

PATIENT
  Age: 35 Year

DRUGS (3)
  1. DEXTROAMPHETAMINE SAC/SLF, AMPHETAMINE ASP/SLF 5 (MIXED SALTS) (WATSON [Suspect]
  2. COCAINE (COCAINE) [Suspect]
  3. HEROIN (DIAMORPHINE) [Suspect]

REACTIONS (1)
  - CARDIO-RESPIRATORY ARREST [None]
